FAERS Safety Report 23490664 (Version 1)
Quarter: 2024Q1

REPORT INFORMATION
  Report Type: Spontaneous
  Country: US (occurrence: None)
  Receive Date: 20240206
  Receipt Date: 20240206
  Transmission Date: 20240410
  Serious: No
  Sender: FDA-Public Use
  Company Number: US-ROCHE-3284128

PATIENT
  Age: 13 Year
  Sex: Female

DRUGS (1)
  1. NUTROPIN [Suspect]
     Active Substance: SOMATROPIN
     Indication: Ill-defined disorder
     Dosage: 10MG/2ML?EXPIRY DATE: 30/APR/2024
     Route: 058
     Dates: start: 202301

REACTIONS (3)
  - Product complaint [Unknown]
  - Off label use [Unknown]
  - No adverse event [Unknown]
